FAERS Safety Report 5781675-1 (Version None)
Quarter: 2008Q2

REPORT INFORMATION
  Report Type: 
  Country: None (occurrence: None)
  Receive Date: 20080619
  Receipt Date: 20080609
  Transmission Date: 20081010
  Serious: Yes (Other)
  Sender: FDA-Public Use
  Company Number: TPA2008A00862

PATIENT
  Age: 5 Decade
  Sex: Female

DRUGS (3)
  1. ROZEREM [Suspect]
     Indication: INSOMNIA
     Dosage: 8 MG, HS, ONCE, PER ORAL
     Route: 048
     Dates: start: 20080101, end: 20080101
  2. SSRI (SSRI) [Concomitant]
  3. UNSPECIFIED MEDICATIONS (ALL OTHER THERAPEUTIC PRODUCTS) [Concomitant]

REACTIONS (3)
  - CRYING [None]
  - SUICIDAL IDEATION [None]
  - THINKING ABNORMAL [None]
